FAERS Safety Report 4466245-X (Version None)
Quarter: 2004Q4

REPORT INFORMATION
  Report Type: 
  Country: None (occurrence: None)
  Receive Date: 20041005
  Receipt Date: 20040930
  Transmission Date: 20050328
  Serious: Yes (Hospitalization)
  Sender: FDA-Public Use
  Company Number: US-JNJFOC-20041000305

PATIENT
  Sex: Female
  Weight: 78.93 kg

DRUGS (21)
  1. INFLIXIMAB [Suspect]
     Indication: RHEUMATOID ARTHRITIS
     Route: 042
  2. MEHTOTREXATE [Concomitant]
  3. FOLIC ACID [Concomitant]
  4. TRIAM/HCTZ [Concomitant]
     Dosage: 70/50 MG DAILY
  5. FUROSEMIDE [Concomitant]
  6. KLOR-CON [Concomitant]
  7. WARFARIN SODIUM [Concomitant]
  8. ASPIRIN [Concomitant]
  9. TYLENOL [Concomitant]
     Indication: DRUG USE FOR UNKNOWN INDICATION
  10. CALTRATE PLUS [Concomitant]
  11. CALTRATE PLUS [Concomitant]
  12. CALTRATE PLUS [Concomitant]
  13. CALTRATE PLUS [Concomitant]
  14. CALTRATE PLUS [Concomitant]
  15. CALTRATE PLUS [Concomitant]
  16. VITAMIN C [Concomitant]
  17. VITAMIN E [Concomitant]
  18. MAGNESIUM [Concomitant]
  19. CLARITIN [Concomitant]
  20. COMBIVENT [Concomitant]
  21. COMBIVENT [Concomitant]

REACTIONS (3)
  - ATRIAL FIBRILLATION [None]
  - ENDOMETRIAL CANCER STAGE I [None]
  - PYREXIA [None]
